FAERS Safety Report 17939199 (Version 2)
Quarter: 2020Q3

REPORT INFORMATION
  Report Type: Report from Study
  Country: None (occurrence: US)
  Receive Date: 20200624
  Receipt Date: 20200729
  Transmission Date: 20201103
  Serious: Yes (Other)
  Sender: FDA-Public Use
  Company Number: US-ABBVIE-20K-163-3449417-00

PATIENT
  Sex: Female

DRUGS (2)
  1. HUMIRA [Suspect]
     Active Substance: ADALIMUMAB
     Indication: RHEUMATOID ARTHRITIS
     Dosage: CITRATE FREE
     Route: 058
     Dates: start: 20190718
  2. PREDNISONE. [Concomitant]
     Active Substance: PREDNISONE
     Indication: PRODUCT USED FOR UNKNOWN INDICATION

REACTIONS (10)
  - Dystonia [Unknown]
  - Parkinson^s disease [Unknown]
  - Tendon disorder [Unknown]
  - Nausea [Recovering/Resolving]
  - Arthritis [Unknown]
  - Gait disturbance [Unknown]
  - Rotator cuff syndrome [Unknown]
  - Loss of personal independence in daily activities [Unknown]
  - Dry eye [Unknown]
  - Musculoskeletal disorder [Unknown]
